FAERS Safety Report 8961130 (Version 1)
Quarter: 2012Q4

REPORT INFORMATION
  Report Type: 
  Country: US (occurrence: US)
  Receive Date: 20121212
  Receipt Date: 20121212
  Transmission Date: 20130627
  Serious: Yes (Death)
  Sender: FDA-Public Use
  Company Number: US-GLAXOSMITHKLINE-A1004047A

PATIENT
  Age: 56 Year
  Sex: Female

DRUGS (4)
  1. PAXIL CR [Suspect]
     Indication: GENERALISED ANXIETY DISORDER
     Dosage: 37MG Twice per day
     Route: 048
  2. DEPAKOTE [Concomitant]
  3. XANAX [Concomitant]
  4. UNSPECIFIED MEDICATIONS [Concomitant]

REACTIONS (2)
  - Cardiac aneurysm [Fatal]
  - Off label use [Unknown]
